FAERS Safety Report 10025409 (Version 1)
Quarter: 2014Q1

REPORT INFORMATION
  Report Type: Spontaneous
  Country: US (occurrence: US)
  Receive Date: 20140320
  Receipt Date: 20140320
  Transmission Date: 20141002
  Serious: No
  Sender: FDA-Public Use
  Company Number: US-PFIZER INC-2014079635

PATIENT
  Age: 61 Year
  Sex: Female
  Weight: 112 kg

DRUGS (5)
  1. LYRICA [Suspect]
     Indication: DIABETIC NEUROPATHY
     Dosage: 100 MG, 3X/DAY
     Route: 048
     Dates: end: 2013
  2. LYRICA [Suspect]
     Indication: NEURALGIA
  3. TENORMIN [Concomitant]
     Indication: HYPERTENSION
     Dosage: UNK
  4. LASIX [Concomitant]
     Dosage: UNK
  5. POTASSIUM [Concomitant]
     Dosage: UNK

REACTIONS (2)
  - Blister [Unknown]
  - Mental disorder [Unknown]
